FAERS Safety Report 7263944-1 (Version None)
Quarter: 2011Q1

REPORT INFORMATION
  Report Type: 
  Country: None (occurrence: None)
  Receive Date: 20110130
  Receipt Date: 20101028
  Transmission Date: 20110831
  Serious: No
  Sender: FDA-Public Use
  Company Number: US-ABBOTT-10P-163-0682610-00

PATIENT
  Sex: Female
  Weight: 73.094 kg

DRUGS (4)
  1. HUMIRA [Suspect]
     Indication: RHEUMATOID ARTHRITIS
     Dates: start: 20100901
  2. GLIMEPIRIDE [Concomitant]
     Indication: DIABETES MELLITUS
     Dosage: 1/2 PILL EACH DAY
  3. LOSARTAN POTASSIUM [Concomitant]
     Indication: HYPERTENSION
  4. ACTOS [Concomitant]
     Indication: DIABETES MELLITUS
     Dosage: 1/2 PILL EACH DAY

REACTIONS (3)
  - DRUG INEFFECTIVE [None]
  - BACK PAIN [None]
  - BLOOD TEST ABNORMAL [None]
